FAERS Safety Report 8534386-3 (Version None)
Quarter: 2012Q3

REPORT INFORMATION
  Report Type: 
  Country: None (occurrence: None)
  Receive Date: 20120724
  Receipt Date: 20120719
  Transmission Date: 20120928
  Serious: Yes (Disabling, Other)
  Sender: FDA-Public Use
  Company Number: PHEH2012US002398

PATIENT
  Sex: Female
  Weight: 89.81 kg

DRUGS (8)
  1. VITAMIN D [Concomitant]
     Dosage: 2000 U, UNK
     Route: 048
  2. DOXYCYCLINE [Concomitant]
     Dosage: 40 MG, UNK
  3. SERTRALINE HYDROCHLORIDE [Concomitant]
     Dosage: 100 MG, UNK
     Route: 048
  4. FLUDROCORTISONE ACETATE [Concomitant]
     Dosage: 1 MG, QD
     Route: 048
  5. GILENYA [Suspect]
     Indication: RELAPSING-REMITTING MULTIPLE SCLEROSIS
     Dosage: 1 DF, DAILY
     Route: 048
     Dates: start: 20110809, end: 20120329
  6. DIVALPROEX SODIUM [Concomitant]
     Dosage: 500 MG, UNK
  7. OXYBUTYNIN [Concomitant]
     Dosage: 5 MG, BID
     Route: 048
  8. PROVIGIL [Concomitant]
     Dosage: 200 MG, BID
     Route: 048

REACTIONS (4)
  - WHITE BLOOD CELL COUNT DECREASED [None]
  - HYPOAESTHESIA [None]
  - FATIGUE [None]
  - MALAISE [None]
